FAERS Safety Report 8816177 (Version 1)
Quarter: 2012Q4

REPORT INFORMATION
  Report Type: 
  Country: CN (occurrence: CN)
  Receive Date: 20120929
  Receipt Date: 20120929
  Transmission Date: 20130627
  Serious: Yes (Hospitalization, Other)
  Sender: FDA-Public Use
  Company Number: CN-BAYER-2012-097753

PATIENT
  Age: 58 Year
  Sex: Male
  Weight: 56 kg

DRUGS (1)
  1. ACETYLSALICYLIC ACID({=100 MG) [Suspect]
     Indication: CORONARY ARTERY DISEASE
     Dosage: 0.1 g, QD
     Route: 048
     Dates: start: 20110907, end: 20110910

REACTIONS (5)
  - Renal impairment [Recovering/Resolving]
  - Pruritus [Recovering/Resolving]
  - Rash [Recovering/Resolving]
  - Diarrhoea [Recovering/Resolving]
  - Pyrexia [Recovering/Resolving]
